FAERS Safety Report 25586549 (Version 3)
Quarter: 2025Q3

REPORT INFORMATION
  Report Type: Spontaneous
  Country: US (occurrence: US)
  Receive Date: 20250721
  Receipt Date: 20250730
  Transmission Date: 20251021
  Serious: Yes (Other)
  Sender: IPSEN BIOPHARMACEUTICALS, INC.
  Company Number: US-IPSEN Group, Research and Development-2024-11591

PATIENT
  Age: 30 Year
  Sex: Male
  Weight: 87.9 kg

DRUGS (10)
  1. TAZVERIK [Suspect]
     Active Substance: TAZEMETOSTAT HYDROBROMIDE
     Indication: Malignant connective tissue neoplasm
  2. ADVIL [Concomitant]
     Active Substance: IBUPROFEN
  3. ALBUTEROL SULFATE [Concomitant]
     Active Substance: ALBUTEROL SULFATE
  4. BUDESONIDE [Concomitant]
     Active Substance: BUDESONIDE
  5. BUPRENORPHINE [Concomitant]
     Active Substance: BUPRENORPHINE
  6. FUROSEMIDE [Concomitant]
     Active Substance: FUROSEMIDE
  7. MAGNESIUM OXIDE [Concomitant]
     Active Substance: MAGNESIUM OXIDE
  8. OXYCODONE [Concomitant]
     Active Substance: OXYCODONE
  9. POTASSIUM CHLORIDE [Concomitant]
     Active Substance: POTASSIUM CHLORIDE
  10. TYLENOL [Concomitant]
     Active Substance: ACETAMINOPHEN

REACTIONS (4)
  - Malignant neoplasm progression [Unknown]
  - Treatment failure [Unknown]
  - Sedation [Unknown]
  - Product ineffective [Unknown]
